FAERS Safety Report 24806070 (Version 1)
Quarter: 2025Q1

REPORT INFORMATION
  Report Type: Spontaneous
  Country: US (occurrence: US)
  Receive Date: 20250103
  Receipt Date: 20250103
  Transmission Date: 20250409
  Serious: No
  Sender: MYLAN
  Company Number: US-MYLANLABS-2024M1117758

PATIENT
  Age: 88 Year
  Sex: Male
  Weight: 76 kg

DRUGS (2)
  1. SILDENAFIL [Suspect]
     Active Substance: SILDENAFIL
     Indication: Neuropathy peripheral
     Dosage: 20 MILLIGRAM, QD (ONCE DAILY)
     Route: 048
  2. SILDENAFIL [Suspect]
     Active Substance: SILDENAFIL
     Indication: Cardiovascular disorder

REACTIONS (1)
  - Off label use [Unknown]
